FAERS Safety Report 4618651-8 (Version None)
Quarter: 2005Q1

REPORT INFORMATION
  Report Type: 
  Country: None (occurrence: None)
  Receive Date: 20050323
  Receipt Date: 20050307
  Transmission Date: 20050727
  Serious: Yes (Hospitalization)
  Sender: FDA-Public Use
  Company Number: 200501792

PATIENT
  Age: 71 Year
  Sex: Male

DRUGS (1)
  1. ZYMAR [Suspect]
     Indication: PROPHYLAXIS
     Dosage: DROP

REACTIONS (3)
  - ARRHYTHMIA [None]
  - DYSPNOEA [None]
  - OBSTRUCTIVE AIRWAYS DISORDER [None]
